FAERS Safety Report 4755546-3 (Version None)
Quarter: 2005Q3

REPORT INFORMATION
  Report Type: 
  Country: None (occurrence: None)
  Receive Date: 20050830
  Receipt Date: 20050512
  Transmission Date: 20060218
  Serious: No
  Sender: FDA-Public Use
  Company Number: US-BRISTOL-MYERS SQUIBB COMPANY-12965489

PATIENT
  Age: 58 Year
  Sex: Female
  Weight: 86 kg

DRUGS (4)
  1. ABILIFY [Suspect]
     Dates: start: 20050411
  2. LIPITOR [Concomitant]
  3. NARDIL [Concomitant]
  4. XANAX [Concomitant]

REACTIONS (1)
  - CONTUSION [None]
